FAERS Safety Report 23080482 (Version 3)
Quarter: 2023Q4

REPORT INFORMATION
  Report Type: Spontaneous
  Country: GB (occurrence: None)
  Receive Date: 20231018
  Receipt Date: 20231031
  Transmission Date: 20240109
  Serious: Yes (Other)
  Sender: FDA-Public Use
  Company Number: 2023A235864

PATIENT
  Sex: Female
  Weight: 68.2 kg

DRUGS (2)
  1. OLAPARIB [Suspect]
     Active Substance: OLAPARIB
     Route: 048
  2. GOSERELIN [Suspect]
     Active Substance: GOSERELIN
     Route: 058

REACTIONS (2)
  - Malignant neoplasm progression [Unknown]
  - Off label use [Unknown]
